FAERS Safety Report 9430214 (Version 2)
Quarter: 2013Q4

REPORT INFORMATION
  Report Type: Spontaneous
  Country: GB (occurrence: None)
  Receive Date: 20130726
  Receipt Date: 20131112
  Transmission Date: 20140711
  Serious: Yes (Life-Threatening, Other)
  Sender: FDA-Public Use
  Company Number: AUR-APL-2013-06023

PATIENT
  Age: 73 Year
  Sex: Male

DRUGS (1)
  1. PIOGLITAZONE (PIOGLITAZONE) [Suspect]
     Indication: DIABETES MELLITUS
     Dosage: 45 MG (45 MG , 1 IN 1 D), ORAL
     Route: 048
     Dates: start: 20080714, end: 20130712

REACTIONS (1)
  - Bladder transitional cell carcinoma [None]
